FAERS Safety Report 7212560-6 (Version None)
Quarter: 2011Q1

REPORT INFORMATION
  Report Type: 
  Country: None (occurrence: None)
  Receive Date: 20110106
  Receipt Date: 20110103
  Transmission Date: 20110831
  Serious: Yes (Death, Other)
  Sender: FDA-Public Use
  Company Number: PHHY2010FR79781

PATIENT
  Age: 77 Year
  Sex: Female

DRUGS (4)
  1. EXELON [Suspect]
     Indication: DEMENTIA ALZHEIMER'S TYPE
     Dosage: 9.5 MG, QD
     Route: 062
     Dates: start: 20100216
  2. ARICEPT [Concomitant]
     Dosage: 10 MG, QD
  3. EQUANIL [Concomitant]
     Dosage: 250 MG, BID
  4. ZOPICLONE [Concomitant]
     Dosage: 1 DF, QD

REACTIONS (4)
  - VOMITING [None]
  - DRUG PRESCRIBING ERROR [None]
  - CHOKING [None]
  - NAUSEA [None]
